FAERS Safety Report 7721813-4 (Version None)
Quarter: 2011Q3

REPORT INFORMATION
  Report Type: 
  Country: None (occurrence: None)
  Receive Date: 20110825
  Receipt Date: 20110822
  Transmission Date: 20111222
  Serious: Yes (Hospitalization)
  Sender: FDA-Public Use
  Company Number: 15861065

PATIENT
  Age: 87 Year
  Sex: Female

DRUGS (4)
  1. PLACEBO [Suspect]
     Indication: EMBOLISM
     Dates: start: 20110620, end: 20110601
  2. WARFARIN SODIUM [Suspect]
     Indication: EMBOLISM
     Dosage: 2 MILLIGRAM, 1 DAY, ORAL
     Route: 048
     Dates: start: 20110620, end: 20110625
  3. APIXABAN [Suspect]
     Indication: EMBOLISM
     Dosage: 10 MILLIGRAM, 1 DAY, ORAL
     Route: 048
     Dates: start: 20110620, end: 20110625
  4. ENOXAPARIN SODIUM [Suspect]
     Indication: EMBOLISM
     Dosage: 1 DOSAGE FORM, 1 DAY, SC
     Route: 059
     Dates: start: 20110620, end: 20110624

REACTIONS (1)
  - RETINAL HAEMORRHAGE [None]
